FAERS Safety Report 6980802-8 (Version None)
Quarter: 2010Q3

REPORT INFORMATION
  Report Type: 
  Country: None (occurrence: None)
  Receive Date: 20100914
  Receipt Date: 20100906
  Transmission Date: 20110219
  Serious: Yes (Other)
  Sender: FDA-Public Use
  Company Number: BR-NOVOPROD-314331

PATIENT
  Age: 38 Year
  Sex: Male

DRUGS (2)
  1. NOVOLIN N [Suspect]
     Indication: TYPE 2 DIABETES MELLITUS
     Dosage: UNK
     Dates: start: 19940101
  2. NOVOLIN N [Suspect]
     Dosage: UNK
     Dates: start: 20080101

REACTIONS (5)
  - LEUKOCYTOCLASTIC VASCULITIS [None]
  - PRURITUS GENERALISED [None]
  - SKIN NODULE [None]
  - SKIN PLAQUE [None]
  - TYPE III IMMUNE COMPLEX MEDIATED REACTION [None]
